FAERS Safety Report 7366172-4 (Version None)
Quarter: 2011Q1

REPORT INFORMATION
  Report Type: 
  Country: None (occurrence: None)
  Receive Date: 20110322
  Receipt Date: 20110307
  Transmission Date: 20110831
  Serious: Yes (Death, Other)
  Sender: FDA-Public Use
  Company Number: JP-BAYER-2011-014638

PATIENT
  Sex: Male
  Weight: 76 kg

DRUGS (9)
  1. NORVASC [Concomitant]
     Dosage: DAILY DOSE 2.5 MG
     Route: 048
  2. NEXAVAR [Suspect]
     Indication: HEPATIC NEOPLASM MALIGNANT
     Dosage: DAILY DOSE 800 MG
     Route: 048
     Dates: start: 20110128, end: 20110208
  3. AMINOLEBAN EN [Concomitant]
     Dosage: DAILY DOSE 50 G
     Route: 048
     Dates: start: 20110119
  4. CRAVIT [Concomitant]
     Dosage: UNK
     Route: 048
     Dates: start: 20110209, end: 20110212
  5. HUMALOG [Concomitant]
     Route: 058
  6. BARACLUDE [Concomitant]
     Dosage: DAILY DOSE .5 MG
     Route: 048
  7. URSO 250 [Concomitant]
     Dosage: DAILY DOSE 300 MG
     Route: 048
  8. NU-LOTAN [Concomitant]
     Dosage: DAILY DOSE 50 MG
     Route: 048
  9. CALONAL [Concomitant]
     Dosage: UNK
     Route: 048
     Dates: start: 20110209, end: 20110216

REACTIONS (7)
  - PYREXIA [None]
  - ACUTE HEPATIC FAILURE [None]
  - PULMONARY OEDEMA [None]
  - PLATELET COUNT DECREASED [None]
  - INFECTION [None]
  - RENAL FAILURE ACUTE [None]
  - DISSEMINATED INTRAVASCULAR COAGULATION [None]
